FAERS Safety Report 9153464 (Version 1)
Quarter: 2013Q1

REPORT INFORMATION
  Report Type: Spontaneous
  Country: US (occurrence: None)
  Receive Date: 20130306
  Receipt Date: 20130306
  Transmission Date: 20140127
  Serious: Yes (Life-Threatening, Hospitalization, Other)
  Sender: FDA-Public Use
  Company Number: None

PATIENT
  Age: 59 Year
  Sex: Female
  Weight: 79.38 kg

DRUGS (1)
  1. TIZANIDINE HYDROCHLORIDE [Suspect]
     Indication: FIBROMYALGIA
     Dosage: ONE BID PO
     Route: 048

REACTIONS (8)
  - Dizziness [None]
  - Feeling drunk [None]
  - Tinnitus [None]
  - Loss of consciousness [None]
  - Dysstasia [None]
  - Blood pressure decreased [None]
  - Headache [None]
  - Nausea [None]
